FAERS Safety Report 10420233 (Version 1)
Quarter: 2014Q3

REPORT INFORMATION
  Report Type: Report from Study
  Country: US (occurrence: None)
  Receive Date: 20140804
  Receipt Date: 20140804
  Transmission Date: 20150326
  Serious: Yes (Other)
  Sender: FDA-Public Use
  Company Number: 2013US008744

PATIENT
  Age: 54 Year
  Sex: Female
  Weight: 116.1 kg

DRUGS (9)
  1. SEROQUEL [Concomitant]
     Active Substance: QUETIAPINE FUMARATE
  2. LEVAQUIN [Concomitant]
     Active Substance: LEVOFLOXACIN
  3. RESTORIL /00393701/ (TEMAZEPAM) [Concomitant]
  4. COZAAR [Concomitant]
     Active Substance: LOSARTAN POTASSIUM
  5. GLUCOPHAGE (METFORMIN HYDROCHLORIDE) [Concomitant]
  6. GLASSIA [Suspect]
     Active Substance: .ALPHA.1-PROTEINASE INHIBITOR HUMAN
     Indication: ALPHA-1 ANTI-TRYPSIN DEFICIENCY
     Route: 042
     Dates: start: 20130327, end: 20130928
  7. SYNTHROID [Concomitant]
     Active Substance: LEVOTHYROXINE SODIUM
  8. TOPIRAGEN (TOPIRAGEN) [Concomitant]
  9. CLONIDINE (CLONIDINE) [Concomitant]
     Active Substance: CLONIDINE

REACTIONS (11)
  - Blood glucose increased [None]
  - Musculoskeletal stiffness [None]
  - Diarrhoea [None]
  - Ear haemorrhage [None]
  - Infusion site mass [None]
  - Local swelling [None]
  - Back pain [None]
  - Blood pressure increased [None]
  - Catheter site pain [None]
  - Dyspnoea [None]
  - Pain in extremity [None]

NARRATIVE: CASE EVENT DATE: 2013
